FAERS Safety Report 15466958 (Version 5)
Quarter: 2018Q4

REPORT INFORMATION
  Report Type: Spontaneous
  Country: US (occurrence: US)
  Receive Date: 20181005
  Receipt Date: 20181223
  Transmission Date: 20190204
  Serious: No
  Sender: FDA-Public Use
  Company Number: US-JNJFOC-20180919814

PATIENT
  Age: 86 Year
  Sex: Female
  Weight: 81.65 kg

DRUGS (8)
  1. VITAMIN D [Concomitant]
     Active Substance: CHOLECALCIFEROL
     Indication: VITAMIN D DEFICIENCY
     Dosage: 1 YEAR
     Route: 048
  2. XARELTO [Suspect]
     Active Substance: RIVAROXABAN
     Indication: CEREBROVASCULAR ACCIDENT PROPHYLAXIS
     Route: 048
     Dates: start: 20180731, end: 20180914
  3. METOPROLOL. [Concomitant]
     Active Substance: METOPROLOL
     Dosage: APPROXIMATELY 10 YEARS OR SO
     Route: 048
  4. CALCIUM [Concomitant]
     Active Substance: CALCIUM
     Route: 048
  5. XARELTO [Suspect]
     Active Substance: RIVAROXABAN
     Indication: ATRIAL FIBRILLATION
     Route: 048
     Dates: start: 20180731, end: 20180914
  6. GLIPIZIDE. [Concomitant]
     Active Substance: GLIPIZIDE
     Indication: TYPE 2 DIABETES MELLITUS
     Dosage: APPROXIMATELY 10 YEARS OR SO
     Route: 048
  7. VITAMIN B12 [Concomitant]
     Active Substance: CYANOCOBALAMIN
     Indication: VITAMIN B12 DEFICIENCY
     Dosage: 1 YEAR
     Route: 065
  8. METFORMIN [Concomitant]
     Active Substance: METFORMIN HYDROCHLORIDE
     Indication: TYPE 2 DIABETES MELLITUS
     Dosage: APPROXIMATELY 10 YEARS OR SO
     Route: 048

REACTIONS (2)
  - Urticaria [Recovered/Resolved]
  - Physical product label issue [Unknown]

NARRATIVE: CASE EVENT DATE: 20180731
